FAERS Safety Report 19030258 (Version 4)
Quarter: 2022Q2

REPORT INFORMATION
  Report Type: Report from Study
  Country: CO (occurrence: CO)
  Receive Date: 20210319
  Receipt Date: 20220411
  Transmission Date: 20220721
  Serious: Yes (Hospitalization, Other)
  Sender: FDA-Public Use
  Company Number: CO-ABBVIE-21K-036-3821004-00

PATIENT
  Age: 52 Year
  Sex: Male
  Weight: 63 kg

DRUGS (3)
  1. ZEMPLAR [Suspect]
     Active Substance: PARICALCITOL
     Indication: Hyperparathyroidism secondary
     Route: 042
     Dates: start: 20141014, end: 20210617
  2. ZEMPLAR [Suspect]
     Active Substance: PARICALCITOL
     Indication: Crohn^s disease
     Dosage: DOSE INCREASED
     Route: 042
     Dates: start: 2021
  3. ZEMPLAR [Suspect]
     Active Substance: PARICALCITOL
     Indication: Chronic kidney disease
     Dosage: DOSE DECREASED
     Route: 042

REACTIONS (14)
  - Road traffic accident [Recovering/Resolving]
  - Joint injury [Recovering/Resolving]
  - Clavicle fracture [Recovering/Resolving]
  - Device related infection [Recovering/Resolving]
  - Pyrexia [Not Recovered/Not Resolved]
  - Chills [Not Recovered/Not Resolved]
  - Bone disorder [Recovering/Resolving]
  - Discomfort [Recovering/Resolving]
  - Blood phosphorus abnormal [Recovering/Resolving]
  - Vomiting [Not Recovered/Not Resolved]
  - Drug ineffective [Recovering/Resolving]
  - Blood parathyroid hormone abnormal [Not Recovered/Not Resolved]
  - Discouragement [Not Recovered/Not Resolved]
  - Depression [Not Recovered/Not Resolved]

NARRATIVE: CASE EVENT DATE: 20210301
